FAERS Safety Report 22088571 (Version 1)
Quarter: 2023Q1

REPORT INFORMATION
  Report Type: Spontaneous
  Country: US (occurrence: US)
  Receive Date: 20230313
  Receipt Date: 20230313
  Transmission Date: 20230418
  Serious: No
  Sender: FDA-Public Use
  Company Number: US-BRISTOL-MYERS SQUIBB COMPANY-2023-035516

PATIENT
  Age: 62 Year
  Sex: Male
  Weight: 79.0 kg

DRUGS (1)
  1. REVLIMID [Suspect]
     Active Substance: LENALIDOMIDE
     Indication: Plasma cell myeloma
     Dosage: FREQUENCY: DAILY ON DAYS 1-21 OF 28-DAY CYCLE
     Route: 048
     Dates: start: 20210601

REACTIONS (3)
  - Influenza like illness [Not Recovered/Not Resolved]
  - Decreased appetite [Not Recovered/Not Resolved]
  - Respiratory tract infection [Not Recovered/Not Resolved]
